FAERS Safety Report 10811887 (Version 1)
Quarter: 2015Q1

REPORT INFORMATION
  Report Type: Report from Study
  Country: CA (occurrence: CA)
  Receive Date: 20150217
  Receipt Date: 20150217
  Transmission Date: 20150721
  Serious: Yes (Hospitalization)
  Sender: FDA-Public Use
  Company Number: CA-ABBVIE-15K-028-1332127-00

PATIENT
  Age: 60 Year
  Sex: Female
  Weight: 40 kg

DRUGS (3)
  1. HUMIRA [Suspect]
     Active Substance: ADALIMUMAB
     Indication: CROHN^S DISEASE
     Route: 058
     Dates: start: 20100401, end: 201311
  2. HUMIRA [Suspect]
     Active Substance: ADALIMUMAB
     Dosage: RE-INDUCTION DOSE
     Route: 058
     Dates: start: 20141107, end: 20141107
  3. HUMIRA [Suspect]
     Active Substance: ADALIMUMAB
     Route: 058
     Dates: start: 20150122

REACTIONS (4)
  - Small intestinal obstruction [Unknown]
  - Treatment noncompliance [Unknown]
  - Crohn^s disease [Recovering/Resolving]
  - Mesenteric vascular occlusion [Unknown]

NARRATIVE: CASE EVENT DATE: 20140916
